FAERS Safety Report 16629614 (Version 1)
Quarter: 2019Q3

REPORT INFORMATION
  Report Type: Spontaneous
  Country: US (occurrence: US)
  Receive Date: 20190725
  Receipt Date: 20190725
  Transmission Date: 20191004
  Serious: No
  Sender: FDA-Public Use
  Company Number: US-SUN PHARMACEUTICAL INDUSTRIES LTD-2018R1-198788

PATIENT
  Sex: Male

DRUGS (1)
  1. TESTOSTERONE. [Suspect]
     Active Substance: TESTOSTERONE
     Indication: CEREBROVASCULAR ACCIDENT
     Dosage: UNK UNK, 1/WEEK
     Route: 030

REACTIONS (3)
  - Product deposit [Unknown]
  - Poor quality product administered [Unknown]
  - Injection site pain [Unknown]
